FAERS Safety Report 11522505 (Version 2)
Quarter: 2015Q3

REPORT INFORMATION
  Report Type: Report from Study
  Country: US (occurrence: US)
  Receive Date: 20150918
  Receipt Date: 20150922
  Transmission Date: 20151125
  Serious: Yes (Life-Threatening, Hospitalization, Other)
  Sender: FDA-Public Use
  Company Number: US-SA-2015SA115869

PATIENT
  Age: 43 Year
  Sex: Female

DRUGS (1)
  1. LEMTRADA [Suspect]
     Active Substance: ALEMTUZUMAB
     Indication: MULTIPLE SCLEROSIS
     Route: 041
     Dates: start: 20150713, end: 20150717

REACTIONS (13)
  - Dyspnoea [Recovered/Resolved]
  - Pulmonary embolism [Unknown]
  - Hepatic steatosis [Unknown]
  - Fatigue [Unknown]
  - Weight increased [Unknown]
  - Thrombosis [Unknown]
  - Blood thyroid stimulating hormone decreased [Unknown]
  - Blood parathyroid hormone decreased [Unknown]
  - Immunosuppression [Unknown]
  - Hepatic enzyme increased [Unknown]
  - Bone pain [Not Recovered/Not Resolved]
  - White blood cell count abnormal [Unknown]
  - Insomnia [Unknown]

NARRATIVE: CASE EVENT DATE: 2015
